FAERS Safety Report 8335530-3 (Version None)
Quarter: 2012Q2

REPORT INFORMATION
  Report Type: 
  Country: None (occurrence: None)
  Receive Date: 20120503
  Receipt Date: 20120424
  Transmission Date: 20120825
  Serious: Yes (Other)
  Sender: FDA-Public Use
  Company Number: US-BAXTER-2012BAX004148

PATIENT
  Sex: Female

DRUGS (2)
  1. CYTOXAN [Suspect]
     Route: 048
  2. CAPECITABINE [Suspect]
     Route: 048

REACTIONS (1)
  - EMBOLISM [None]
